FAERS Safety Report 9020622 (Version 1)
Quarter: 2013Q1

REPORT INFORMATION
  Report Type: Spontaneous
  Country: US (occurrence: US)
  Receive Date: 20130119
  Receipt Date: 20130119
  Transmission Date: 20140127
  Serious: No
  Sender: FDA-Public Use
  Company Number: US-ALLERGAN-1206961US

PATIENT
  Age: 65 None
  Sex: Female

DRUGS (8)
  1. BOTOX COSMETIC [Suspect]
     Indication: SKIN WRINKLING
     Dosage: UNK
     Route: 030
     Dates: start: 20120411, end: 20120411
  2. BOTOX COSMETIC [Suspect]
     Indication: SKIN WRINKLING
  3. BOTOX COSMETIC [Suspect]
     Indication: SKIN WRINKLING
  4. JUVEDERM ULTRA XC [Concomitant]
  5. CO2 RESURFACING [Concomitant]
     Dosage: UNK
     Dates: start: 20120412, end: 20120412
  6. BLOOD PRESSURE MEDICATION [Concomitant]
     Indication: HYPERTENSION
  7. ALLERGY MEDICATION [Concomitant]
  8. HORMONES NOS [Concomitant]

REACTIONS (3)
  - Hypoaesthesia oral [Unknown]
  - Lip swelling [Recovered/Resolved]
  - Drug ineffective [Unknown]
